FAERS Safety Report 20492916 (Version 8)
Quarter: 2023Q1

REPORT INFORMATION
  Report Type: Spontaneous
  Country: GB (occurrence: GB)
  Receive Date: 20220219
  Receipt Date: 20230131
  Transmission Date: 20230418
  Serious: Yes (Disabling, Other)
  Sender: FDA-Public Use
  Company Number: GB-NOVARTISPH-NVSC2020GB106250

PATIENT
  Age: 64 Year
  Sex: Female

DRUGS (48)
  1. CYCLOPHOSPHAMIDE [Suspect]
     Active Substance: CYCLOPHOSPHAMIDE
     Indication: Breast cancer metastatic
     Dosage: 1000 MG, Q3W
     Route: 042
     Dates: start: 20201019, end: 20201109
  2. CYCLOPHOSPHAMIDE [Suspect]
     Active Substance: CYCLOPHOSPHAMIDE
     Dosage: 900 MG, Q3W (NUMBER OF CYCLES COMPLETED)
     Route: 042
     Dates: start: 20201130, end: 20210201
  3. TRASTUZUMAB [Suspect]
     Active Substance: TRASTUZUMAB
     Indication: Breast cancer metastatic
     Dosage: 483 MG, Q3W (6 CYCLES, DOSE MODIFIED)
     Route: 042
     Dates: start: 20170508, end: 20170508
  4. TRASTUZUMAB [Suspect]
     Active Substance: TRASTUZUMAB
     Dosage: 483 MG, Q3W (DOSE MODIFIED (MODIFIED DUE TO WEIGHT BUT FULL DOSE GIVEN. NEW DOSE ALREADY REPORTED))
     Route: 042
     Dates: start: 20170508, end: 20170508
  5. TRASTUZUMAB [Suspect]
     Active Substance: TRASTUZUMAB
     Dosage: 336 MG, Q3W (6 CYCLES, DOSE MODIFIED)
     Route: 042
     Dates: start: 20170920, end: 20180103
  6. TRASTUZUMAB [Suspect]
     Active Substance: TRASTUZUMAB
     Dosage: 375 MG, Q3W (DOSE MODIFIED (MODIFIED DUE TO WEIGHT BUT FULL DOSE GIVEN. NEW DOSE ALREADY REPORTED))
     Route: 042
     Dates: start: 20170529, end: 20170829
  7. DOCETAXEL [Suspect]
     Active Substance: DOCETAXEL
     Indication: Breast cancer metastatic
     Dosage: 100 MG, Q3W (6 CYCLES (PLANNED NUMBER OF CYCLES COMPLETED))
     Route: 042
     Dates: start: 20170508, end: 20170829
  8. CAPECITABINE [Suspect]
     Active Substance: CAPECITABINE
     Indication: Breast cancer metastatic
     Dosage: 3000 MG, QD
     Route: 048
     Dates: start: 20180809
  9. CAPECITABINE [Suspect]
     Active Substance: CAPECITABINE
     Dosage: 1500 MG (0.5 DAY)
     Route: 042
     Dates: start: 20180809, end: 202009
  10. ADO-TRASTUZUMAB EMTANSINE [Suspect]
     Active Substance: ADO-TRASTUZUMAB EMTANSINE
     Indication: Breast cancer metastatic
     Dosage: 220 MG, Q3W
     Route: 042
     Dates: start: 20180420, end: 20180622
  11. EPIRUBICIN [Suspect]
     Active Substance: EPIRUBICIN
     Indication: Breast cancer metastatic
     Dosage: 120 MG, Q3W (PLANNED NUMBER OF CYCLES COMPLETED)
     Route: 042
     Dates: start: 20201019, end: 20210201
  12. PERTUZUMAB [Suspect]
     Active Substance: PERTUZUMAB
     Indication: Breast cancer metastatic
     Dosage: 840 MG, Q3W (DOSE MODIFIED)
     Route: 042
     Dates: start: 20170508, end: 20170508
  13. PERTUZUMAB [Suspect]
     Active Substance: PERTUZUMAB
     Dosage: 420 MG, Q3W (PLANNED NUMBER OF CYCLES COMPLETED)
     Route: 042
     Dates: start: 20170529, end: 20180103
  14. LANSOPRAZOLE [Concomitant]
     Active Substance: LANSOPRAZOLE
     Indication: Gastrooesophageal reflux disease
     Dosage: 60 MG, QD
     Route: 048
     Dates: start: 20170905
  15. LANSOPRAZOLE [Concomitant]
     Active Substance: LANSOPRAZOLE
     Dosage: 30 MG (0.5 D)
     Route: 048
     Dates: start: 20170905, end: 20210831
  16. AMITRIPTYLINE [Concomitant]
     Active Substance: AMITRIPTYLINE
     Indication: Depression
     Dosage: 10 MG
     Route: 048
     Dates: start: 2017
  17. AMITRIPTYLINE [Concomitant]
     Active Substance: AMITRIPTYLINE
     Indication: Anxiety
  18. LISINOPRIL [Concomitant]
     Active Substance: LISINOPRIL
     Indication: Ejection fraction decreased
     Dosage: 20 MG, QD
     Route: 048
     Dates: start: 20180130, end: 20210831
  19. ATORVASTATIN [Concomitant]
     Active Substance: ATORVASTATIN
     Indication: Ejection fraction decreased
     Dosage: 40 MG, QD
     Route: 048
     Dates: start: 2017, end: 20210831
  20. AMOXICILLIN\CLAVULANATE POTASSIUM [Concomitant]
     Active Substance: AMOXICILLIN\CLAVULANATE POTASSIUM
     Indication: Pyrexia
     Dosage: 1875 MG, QD
     Route: 048
     Dates: start: 20190411, end: 20190417
  21. AMOXICILLIN\CLAVULANATE POTASSIUM [Concomitant]
     Active Substance: AMOXICILLIN\CLAVULANATE POTASSIUM
     Dosage: 625 MG
     Route: 048
     Dates: start: 20190411, end: 20190417
  22. AMOXICILLIN\CLAVULANATE POTASSIUM [Concomitant]
     Active Substance: AMOXICILLIN\CLAVULANATE POTASSIUM
     Dosage: 625 MG, TID
     Route: 048
     Dates: start: 20210705, end: 20210711
  23. CARVEDILOL [Concomitant]
     Active Substance: CARVEDILOL
     Indication: Ejection fraction decreased
     Dosage: 6.25 MG (0.5 DAY)
     Route: 048
     Dates: start: 20180130, end: 20210831
  24. CARVEDILOL [Concomitant]
     Active Substance: CARVEDILOL
     Indication: Adverse event
  25. FUROSEMIDE [Concomitant]
     Active Substance: FUROSEMIDE
     Indication: Ejection fraction decreased
     Dosage: 20 MG, QD
     Route: 048
     Dates: start: 20180406, end: 20190128
  26. BETAHISTINE [Concomitant]
     Active Substance: BETAHISTINE
     Indication: Adverse event
     Dosage: 16 MG, TID
     Route: 048
     Dates: start: 20200102, end: 202002
  27. CLARITHROMYCIN [Concomitant]
     Active Substance: CLARITHROMYCIN
     Indication: Adverse event
     Dosage: 500 MG (0.5 DAY)
     Route: 048
     Dates: start: 20210705, end: 20210711
  28. CODEINE PHOSPHATE [Concomitant]
     Active Substance: CODEINE PHOSPHATE
     Indication: Pain
     Dosage: 30 MG, (0.25 DAY)
     Route: 048
     Dates: start: 20200710, end: 20200812
  29. DEXAMETHASONE [Concomitant]
     Active Substance: DEXAMETHASONE
     Indication: Product used for unknown indication
     Dosage: 4 MG
     Route: 048
     Dates: start: 20201019, end: 20210201
  30. DEXAMETHASONE [Concomitant]
     Active Substance: DEXAMETHASONE
     Dosage: 16 MG
     Route: 048
     Dates: start: 20210729, end: 20210831
  31. DEXAMETHASONE SODIUM PHOSPHATE [Concomitant]
     Active Substance: DEXAMETHASONE SODIUM PHOSPHATE
     Indication: Product used for unknown indication
     Dosage: 8 MG
     Route: 042
     Dates: start: 20201019, end: 20210201
  32. DOCUSATE SODIUM [Concomitant]
     Active Substance: DOCUSATE SODIUM
     Indication: Product used for unknown indication
     Dosage: 200 MG
     Route: 048
     Dates: start: 20201019, end: 20210831
  33. DOMPERIDONE [Concomitant]
     Active Substance: DOMPERIDONE
     Indication: Product used for unknown indication
     Dosage: 10 MG
     Route: 048
     Dates: start: 20201019, end: 20201025
  34. MIRTAZAPINE [Concomitant]
     Active Substance: MIRTAZAPINE
     Indication: Insomnia
     Dosage: 15 MG
     Route: 048
     Dates: start: 20210608, end: 20210831
  35. OMEPRAZOLE [Concomitant]
     Active Substance: OMEPRAZOLE
     Indication: Dyspepsia
     Dosage: 20 MG, QD
     Route: 048
     Dates: end: 20210831
  36. ONDANSETRON [Concomitant]
     Active Substance: ONDANSETRON
     Indication: Product used for unknown indication
     Dosage: 8 MG
     Route: 048
     Dates: start: 20201019, end: 20210201
  37. ACETAMINOPHEN [Concomitant]
     Active Substance: ACETAMINOPHEN
     Indication: Adverse event
     Dosage: UNK
     Route: 048
     Dates: start: 201912, end: 2020
  38. ZOLEDRONIC ACID [Concomitant]
     Active Substance: ZOLEDRONIC ACID
     Indication: Product used for unknown indication
     Dosage: 4 MG
     Route: 042
     Dates: start: 20201109, end: 20210705
  39. MORPHINE SULFATE [Concomitant]
     Active Substance: MORPHINE SULFATE
     Indication: Pain
     Dosage: 30 MG, BID
     Route: 048
     Dates: end: 20210615
  40. MORPHINE SULFATE [Concomitant]
     Active Substance: MORPHINE SULFATE
     Indication: Adverse event
     Dosage: 40 MG, BID
     Route: 048
     Dates: start: 20210616, end: 20210831
  41. MORPHINE SULFATE [Concomitant]
     Active Substance: MORPHINE SULFATE
     Dosage: 10 MG
     Route: 048
     Dates: end: 20210831
  42. MORPHINE SULFATE [Concomitant]
     Active Substance: MORPHINE SULFATE
     Dosage: UNK
     Route: 065
     Dates: start: 201912, end: 2020
  43. MORPHINE SULFATE [Concomitant]
     Active Substance: MORPHINE SULFATE
     Dosage: 30 MG (0.5 DAY)
     Route: 048
     Dates: end: 20210615
  44. MORPHINE SULFATE [Concomitant]
     Active Substance: MORPHINE SULFATE
     Dosage: 40 MG (0.5 DAY)
     Route: 048
     Dates: start: 20210616, end: 20210831
  45. DALTEPARIN [Concomitant]
     Active Substance: DALTEPARIN
     Indication: Adverse event
     Dosage: UNK (12500 U )
     Route: 065
     Dates: start: 20200402, end: 20200402
  46. POLYETHYLENE GLYCOL 3350\POTASSIUM CHLORIDE\SODIUM BICARBONATE\SODIUM [Concomitant]
     Active Substance: POLYETHYLENE GLYCOL 3350\POTASSIUM CHLORIDE\SODIUM BICARBONATE\SODIUM CHLORIDE
     Indication: Adverse event
     Dosage: 2 DOSAGE FORM (0.5 DAY)
     Route: 048
     Dates: start: 20201014, end: 20210831
  47. SENNA [Concomitant]
     Active Substance: SENNA LEAF\SENNOSIDES\SENNOSIDES A AND B
     Indication: Adverse event
     Dosage: 15 MG, QD
     Route: 048
     Dates: start: 20201014, end: 20210831
  48. DIAH LIMIT [Concomitant]
     Indication: Product used for unknown indication
     Dosage: UNK
     Route: 065

REACTIONS (7)
  - Headache [Not Recovered/Not Resolved]
  - Pleuritic pain [Recovered/Resolved]
  - Abdominal distension [Recovered/Resolved with Sequelae]
  - Visual impairment [Unknown]
  - Musculoskeletal chest pain [Unknown]
  - Chest pain [Unknown]
  - Vertigo [Recovering/Resolving]

NARRATIVE: CASE EVENT DATE: 20191201
